FAERS Safety Report 22370939 (Version 1)
Quarter: 2023Q2

REPORT INFORMATION
  Report Type: Spontaneous
  Country: US (occurrence: US)
  Receive Date: 20230526
  Receipt Date: 20230526
  Transmission Date: 20230722
  Serious: Yes (Other)
  Sender: FDA-Public Use
  Company Number: US-drreddys-LIT/USA/23/0165396

PATIENT
  Age: 36 Year
  Sex: Male

DRUGS (2)
  1. METOPROLOL SUCCINATE [Suspect]
     Active Substance: METOPROLOL SUCCINATE
     Indication: Hypertension
  2. LOSARTAN [Suspect]
     Active Substance: LOSARTAN
     Indication: Hypertension

REACTIONS (2)
  - Chronic kidney disease [Unknown]
  - Drug ineffective [Unknown]
